FAERS Safety Report 7215927-5 (Version None)
Quarter: 2011Q1

REPORT INFORMATION
  Report Type: 
  Country: None (occurrence: None)
  Receive Date: 20110107
  Receipt Date: 20110105
  Transmission Date: 20110831
  Serious: Yes (Death, Hospitalization)
  Sender: FDA-Public Use
  Company Number: US-CEPHALON-2011000085

PATIENT
  Sex: Female

DRUGS (9)
  1. TREANDA [Suspect]
     Route: 042
     Dates: start: 20100803, end: 20100804
  2. ATIVAN [Concomitant]
     Dates: start: 20101224
  3. BENADRYL [Concomitant]
  4. TREANDA [Suspect]
     Route: 042
     Dates: start: 20100128, end: 20100129
  5. PLETAL [Concomitant]
  6. TREANDA [Suspect]
     Indication: NON-HODGKIN'S LYMPHOMA
     Route: 042
     Dates: start: 20100107, end: 20100108
  7. TESSALON [Concomitant]
  8. SINGULAIR [Concomitant]
  9. TUSSIONEX [Concomitant]

REACTIONS (4)
  - HYPOXIA [None]
  - AGITATION [None]
  - NON-HODGKIN'S LYMPHOMA [None]
  - ANXIETY [None]
